FAERS Safety Report 7471522-4 (Version None)
Quarter: 2011Q2

REPORT INFORMATION
  Report Type: 
  Country: None (occurrence: None)
  Receive Date: 20110502
  Receipt Date: 20110418
  Transmission Date: 20111010
  Serious: Yes (Other)
  Sender: FDA-Public Use
  Company Number: 1000020540

PATIENT
  Age: 17 Year
  Sex: Male

DRUGS (2)
  1. CITALOPRAM HYDROBROMIDE [Suspect]
  2. LINEZOLID [Suspect]

REACTIONS (1)
  - MUSCLE RIGIDITY [None]
